FAERS Safety Report 23382037 (Version 2)
Quarter: 2024Q1

REPORT INFORMATION
  Report Type: Report from Study
  Country: DE (occurrence: DE)
  Receive Date: 20240109
  Receipt Date: 20240116
  Transmission Date: 20240410
  Serious: Yes (Hospitalization, Other)
  Sender: FDA-Public Use
  Company Number: DE-002147023-NVSC2024DE003156

PATIENT
  Sex: Female
  Weight: 100 kg

DRUGS (19)
  1. COSENTYX [Suspect]
     Active Substance: SECUKINUMAB
     Indication: Ankylosing spondylitis
     Dosage: 150 MG, ONCE/SINGLE
     Route: 065
     Dates: start: 20221208, end: 20221208
  2. COSENTYX [Suspect]
     Active Substance: SECUKINUMAB
     Dosage: 150 MG, ONCE/SINGLE
     Route: 065
     Dates: start: 20221215, end: 20221215
  3. COSENTYX [Suspect]
     Active Substance: SECUKINUMAB
     Dosage: 150 MG, ONCE/SINGLE
     Route: 065
     Dates: start: 20221222, end: 20221222
  4. COSENTYX [Suspect]
     Active Substance: SECUKINUMAB
     Dosage: 150 MG, ONCE/SINGLE
     Route: 065
     Dates: start: 20221229, end: 20221229
  5. COSENTYX [Suspect]
     Active Substance: SECUKINUMAB
     Dosage: 150 MG, ONCE/SINGLE
     Route: 065
     Dates: start: 20230105, end: 20230105
  6. COSENTYX [Suspect]
     Active Substance: SECUKINUMAB
     Dosage: 150 MG, ONCE/SINGLE
     Route: 065
     Dates: start: 20230202, end: 20230202
  7. COSENTYX [Suspect]
     Active Substance: SECUKINUMAB
     Dosage: 150 MG, ONCE/SINGLE
     Route: 065
     Dates: start: 20230302, end: 20230302
  8. COSENTYX [Suspect]
     Active Substance: SECUKINUMAB
     Dosage: 150 MG, ONCE/SINGLE
     Route: 065
     Dates: start: 20230330, end: 20230330
  9. COSENTYX [Suspect]
     Active Substance: SECUKINUMAB
     Dosage: 150 MG, ONCE/SINGLE
     Route: 065
     Dates: start: 20230427, end: 20230427
  10. COSENTYX [Suspect]
     Active Substance: SECUKINUMAB
     Dosage: 150 MG, ONCE/SINGLE
     Route: 065
     Dates: start: 20230525, end: 20230525
  11. COSENTYX [Suspect]
     Active Substance: SECUKINUMAB
     Dosage: 150 MG, ONCE/SINGLE
     Route: 065
     Dates: start: 20230629, end: 20230629
  12. COSENTYX [Suspect]
     Active Substance: SECUKINUMAB
     Dosage: 150 MG, ONCE/SINGLE
     Route: 065
     Dates: start: 20230727, end: 20230727
  13. COSENTYX [Suspect]
     Active Substance: SECUKINUMAB
     Dosage: 150 MG, ONCE/SINGLE
     Route: 065
     Dates: start: 20230824, end: 20230824
  14. COSENTYX [Suspect]
     Active Substance: SECUKINUMAB
     Dosage: 150 MG, ONCE/SINGLE
     Route: 065
     Dates: start: 20230921, end: 20230921
  15. COSENTYX [Suspect]
     Active Substance: SECUKINUMAB
     Dosage: 150 MG, ONCE/SINGLE
     Route: 065
     Dates: start: 20231019, end: 20231019
  16. IBUPROFEN [Concomitant]
     Active Substance: IBUPROFEN
     Indication: Spondylitis
     Dosage: 800 MG, PRN
     Route: 048
     Dates: start: 202201
  17. CHOLECALCIFEROL [Concomitant]
     Active Substance: CHOLECALCIFEROL
     Indication: Vitamin supplementation
     Dosage: 20 IU (5 DAYS DAILY)
     Route: 065
     Dates: start: 201912
  18. CHOLECALCIFEROL [Concomitant]
     Active Substance: CHOLECALCIFEROL
     Dosage: 20 IU, QW
     Route: 065
     Dates: start: 20230213
  19. LEVOTHYROXINE [Concomitant]
     Active Substance: LEVOTHYROXINE
     Indication: Hypothyroidism
     Dosage: 75 MG, QD
     Route: 048

REACTIONS (4)
  - Cholelithiasis [Recovered/Resolved]
  - Umbilical hernia [Recovered/Resolved]
  - Gastric ulcer [Unknown]
  - Gastrooesophageal reflux disease [Unknown]

NARRATIVE: CASE EVENT DATE: 20230606
